FAERS Safety Report 23948038 (Version 1)
Quarter: 2024Q2

REPORT INFORMATION
  Report Type: Spontaneous
  Country: TN (occurrence: TN)
  Receive Date: 20240607
  Receipt Date: 20240607
  Transmission Date: 20240716
  Serious: Yes (Other)
  Sender: FDA-Public Use
  Company Number: TN-MLMSERVICE-20240521-PI067297-00087-1

PATIENT
  Age: 57 Year
  Sex: Female

DRUGS (6)
  1. FLUOXETINE [Interacting]
     Active Substance: FLUOXETINE HYDROCHLORIDE
     Indication: Depression
     Dosage: FOR 10 YEARS
  2. FLUCONAZOLE [Interacting]
     Active Substance: FLUCONAZOLE
     Indication: Oesophageal candidiasis
     Route: 048
  3. CIPROFLOXACIN [Interacting]
     Active Substance: CIPROFLOXACIN
     Indication: Antibiotic therapy
     Route: 042
  4. CEFOTAXIME [Suspect]
     Active Substance: CEFOTAXIME SODIUM
     Indication: Peritoneal abscess
     Route: 042
  5. CIPROFLOXACIN [Interacting]
     Active Substance: CIPROFLOXACIN
     Indication: Peritoneal abscess
     Route: 042
  6. CEFOTAXIME [Suspect]
     Active Substance: CEFOTAXIME SODIUM
     Indication: Antibiotic therapy

REACTIONS (4)
  - Toxicity to various agents [Recovered/Resolved]
  - Generalised tonic-clonic seizure [Recovered/Resolved]
  - Neurotoxicity [Recovered/Resolved]
  - Drug interaction [Recovered/Resolved]
